FAERS Safety Report 21556559 (Version 3)
Quarter: 2022Q4

REPORT INFORMATION
  Report Type: Report from Study
  Country: US (occurrence: US)
  Receive Date: 20221104
  Receipt Date: 20221209
  Transmission Date: 20230113
  Serious: No
  Sender: FDA-Public Use
  Company Number: US-TAIHO-2022-001124

PATIENT
  Age: 64 Year
  Sex: Male

DRUGS (4)
  1. LONSURF [Suspect]
     Active Substance: TIPIRACIL HYDROCHLORIDE\TRIFLURIDINE
     Indication: Colon cancer
     Dosage: CURRENT CYCLE UNKNOWN.
     Route: 048
     Dates: start: 20220830
  2. LONSURF [Suspect]
     Active Substance: TIPIRACIL HYDROCHLORIDE\TRIFLURIDINE
     Dosage: CURRENT CYCLE UNKNOWN.
     Route: 048
     Dates: start: 202209, end: 202210
  3. AVASTIN [Concomitant]
     Active Substance: BEVACIZUMAB
     Indication: Product used for unknown indication
  4. GLICLAZIDE [Concomitant]
     Active Substance: GLICLAZIDE
     Indication: Product used for unknown indication

REACTIONS (6)
  - Decreased appetite [Unknown]
  - Fatigue [Unknown]
  - Diarrhoea [Unknown]
  - Weight decreased [Unknown]
  - Asthenia [Unknown]
  - Drug ineffective [Unknown]
